FAERS Safety Report 21746341 (Version 1)
Quarter: 2022Q4

REPORT INFORMATION
  Report Type: Report from Study
  Country: DE (occurrence: DE)
  Receive Date: 20221219
  Receipt Date: 20221219
  Transmission Date: 20230112
  Serious: Yes (Death, Other)
  Sender: FDA-Public Use
  Company Number: DE-002147023-NVSC2022DE292050

PATIENT
  Sex: Female
  Weight: 67 kg

DRUGS (3)
  1. KISQALI [Suspect]
     Active Substance: RIBOCICLIB
     Indication: Breast cancer metastatic
     Dosage: 600 MG (DAILY DOSE) (REGIMEN 21 DAYS INTAKE THEN 7 DAYS PAUSE)
     Route: 048
     Dates: start: 20191230, end: 20200217
  2. KISQALI [Suspect]
     Active Substance: RIBOCICLIB
     Dosage: 400 MG (DAILY DOSE) (REGIMEN 21 DAYS INTAKE THEN 7 DAYS PAUSE) (STOP DATE: 17 APR 2020)
     Route: 048
     Dates: start: 20200408
  3. LETROZOLE [Suspect]
     Active Substance: LETROZOLE
     Indication: Breast cancer metastatic
     Dosage: 2.5 MG, QD (DAILY DOSE)
     Route: 048
     Dates: start: 20191230

REACTIONS (3)
  - Death [Fatal]
  - Metastases to lung [Unknown]
  - Dyspnoea [Recovered/Resolved]

NARRATIVE: CASE EVENT DATE: 20211205
